FAERS Safety Report 7744259-1 (Version None)
Quarter: 2011Q3

REPORT INFORMATION
  Report Type: 
  Country: None (occurrence: None)
  Receive Date: 20110912
  Receipt Date: 20110902
  Transmission Date: 20111222
  Serious: Yes (Hospitalization, Disabling)
  Sender: FDA-Public Use
  Company Number: GXBR2011US03114

PATIENT
  Sex: Male
  Weight: 104.31 kg

DRUGS (5)
  1. ENOXAPARIN SODIUM [Suspect]
     Indication: THROMBOSIS PROPHYLAXIS
     Dosage: 40 MG, QD
     Route: 058
     Dates: start: 20101203, end: 20101222
  2. ENOXAPARIN SODIUM [Suspect]
     Dosage: 40 MG, QD
     Dates: start: 20101201, end: 20101202
  3. TRILIPIX [Concomitant]
     Indication: BLOOD CHOLESTEROL
     Dosage: 135 MG, UNK
  4. XANAX [Concomitant]
     Indication: ANXIETY
     Dosage: 0.5 MG, TID
  5. PREVACID [Concomitant]
     Indication: GASTROOESOPHAGEAL REFLUX DISEASE
     Dosage: 30 MG, BID

REACTIONS (7)
  - PULMONARY EMBOLISM [None]
  - CARDIOMEGALY [None]
  - DRUG INEFFECTIVE [None]
  - VENOUS INJURY [None]
  - DYSPNOEA [None]
  - DEEP VEIN THROMBOSIS [None]
  - OEDEMA PERIPHERAL [None]
